FAERS Safety Report 9669438 (Version 1)
Quarter: 2013Q4

REPORT INFORMATION
  Report Type: Spontaneous
  Country: US (occurrence: US)
  Receive Date: 20131105
  Receipt Date: 20131105
  Transmission Date: 20140711
  Serious: Yes (Other)
  Sender: FDA-Public Use
  Company Number: US-DRREDDYS-USA/USA/13/0035356

PATIENT
  Age: 43 Year
  Sex: Male

DRUGS (2)
  1. DONEPEZIL HYDROCHLORIDE TABLETS 10MG (APMPL) [Suspect]
     Indication: DEMENTIA
     Route: 065
  2. DONEPEZIL HYDROCHLORIDE TABLETS 10MG (APMPL) [Suspect]
     Route: 065

REACTIONS (4)
  - Frontotemporal dementia [Unknown]
  - Confusional state [Recovering/Resolving]
  - Hypercholesterolaemia [Unknown]
  - Hypertriglyceridaemia [Unknown]
